FAERS Safety Report 21512646 (Version 1)
Quarter: 2022Q4

REPORT INFORMATION
  Report Type: Spontaneous
  Country: CA (occurrence: CA)
  Receive Date: 20221027
  Receipt Date: 20221027
  Transmission Date: 20230113
  Serious: Yes (Other)
  Sender: FDA-Public Use
  Company Number: CA-PFIZER INC-202201232995

PATIENT
  Age: 15 Year
  Sex: Female
  Weight: 54 kg

DRUGS (2)
  1. DEXTROSE [Suspect]
     Active Substance: DEXTROSE
     Dosage: 100 ML/H D50%; GIR 16 MG/KG/ MIN
  2. INSULIN NOS [Suspect]
     Active Substance: INSULIN NOS
     Dosage: 1-2 UNITS/ KG/H

REACTIONS (2)
  - Vitamin B1 deficiency [Recovered/Resolved]
  - Lactic acidosis [Recovered/Resolved]
